FAERS Safety Report 9876113 (Version 2)
Quarter: 2014Q1

REPORT INFORMATION
  Report Type: Other
  Country: US (occurrence: US)
  Receive Date: 20140206
  Receipt Date: 20140206
  Transmission Date: 20141002
  Serious: No
  Sender: FDA-Public Use
  Company Number: US-ACORDA-ACO_35590_2013

PATIENT
  Sex: Female
  Weight: 84.35 kg

DRUGS (2)
  1. AMPYRA [Suspect]
     Indication: FATIGUE
     Dosage: 10 MG, BID
     Route: 048
     Dates: start: 201301, end: 2013
  2. TYSABRI [Concomitant]
     Indication: MULTIPLE SCLEROSIS
     Dosage: 300 MG, EVERY 4 WEEKS
     Route: 042
     Dates: start: 20090505

REACTIONS (1)
  - Insomnia [Recovered/Resolved]
